FAERS Safety Report 8005056-5 (Version None)
Quarter: 2011Q4

REPORT INFORMATION
  Report Type: 
  Country: None (occurrence: None)
  Receive Date: 20111223
  Receipt Date: 20111213
  Transmission Date: 20120403
  Serious: Yes (Other)
  Sender: FDA-Public Use
  Company Number: FR-SANOFI-AVENTIS-2011SA070877

PATIENT
  Age: 78 Year
  Sex: Female
  Weight: 77 kg

DRUGS (6)
  1. TRAMADOL HCL [Concomitant]
     Route: 048
     Dates: start: 20100801
  2. MULTAQ [Suspect]
     Indication: ATRIAL FIBRILLATION
     Route: 048
     Dates: start: 20110322, end: 20111024
  3. NICARDIPINE HCL [Concomitant]
     Route: 048
     Dates: start: 20110519
  4. ACETAMINOPHEN AND TRAMADOL HCL [Concomitant]
     Route: 048
     Dates: start: 20100801
  5. PREVISCAN [Concomitant]
     Route: 048
  6. VALSARTAN  AND HYDROCHLOROTHIAZIDE [Concomitant]
     Route: 048
     Dates: start: 20050101

REACTIONS (2)
  - BLOOD CREATININE INCREASED [None]
  - RENAL FAILURE [None]
